FAERS Safety Report 7679463-4 (Version None)
Quarter: 2011Q3

REPORT INFORMATION
  Report Type: 
  Country: None (occurrence: None)
  Receive Date: 20110812
  Receipt Date: 20110812
  Transmission Date: 20111222
  Serious: Yes (Other)
  Sender: FDA-Public Use
  Company Number: None

PATIENT
  Sex: Male

DRUGS (1)
  1. PEG-INTRON [Suspect]
     Indication: HEPATITIS C
     Dosage: 150MCG
     Route: 058
     Dates: start: 20100701, end: 20110805

REACTIONS (4)
  - CHILLS [None]
  - INJECTION SITE HAEMATOMA [None]
  - NAUSEA [None]
  - VOMITING [None]
